FAERS Safety Report 14648841 (Version 5)
Quarter: 2018Q2

REPORT INFORMATION
  Report Type: Spontaneous
  Country: CH (occurrence: CH)
  Receive Date: 20180316
  Receipt Date: 20180618
  Transmission Date: 20180711
  Serious: Yes (Hospitalization)
  Sender: FDA-Public Use
  Company Number: CH-BAYER-2018-043000

PATIENT
  Age: 23 Year
  Sex: Female
  Weight: 74 kg

DRUGS (1)
  1. JAYDESS [Suspect]
     Active Substance: LEVONORGESTREL
     Indication: CONTRACEPTION
     Dosage: 14 MCG/24HR, CONT
     Route: 015
     Dates: start: 201703, end: 20180304

REACTIONS (5)
  - Drug ineffective [None]
  - Peritoneal haemorrhage [None]
  - Ectopic pregnancy with contraceptive device [None]
  - Abortion of ectopic pregnancy [None]
  - Abdominal pain lower [None]

NARRATIVE: CASE EVENT DATE: 20180303
